FAERS Safety Report 23561493 (Version 2)
Quarter: 2024Q1

REPORT INFORMATION
  Report Type: Other
  Country: US (occurrence: None)
  Receive Date: 20240225
  Receipt Date: 20240229
  Transmission Date: 20240409
  Serious: Yes (Death)
  Sender: FDA-Public Use
  Company Number: US-ROCHE-3514757

PATIENT
  Age: 62 Year
  Sex: Female
  Weight: 111.8 kg

DRUGS (18)
  1. AVASTIN [Suspect]
     Active Substance: BEVACIZUMAB
     Indication: Malignant neoplasm of unknown primary site
     Dosage: INFUSE 1118MG INTRAVENOUSLY EVERY 2 WEEK(S), 100 MG/KG
     Route: 042
  2. AVASTIN [Suspect]
     Active Substance: BEVACIZUMAB
     Indication: Metastases to bone
     Dosage: SERVICE DATE: 26/AUG/2021
     Route: 065
  3. ACETAMINOPHEN [Concomitant]
     Active Substance: ACETAMINOPHEN
     Route: 048
  4. ALBUTEROL [Concomitant]
     Active Substance: ALBUTEROL
     Dosage: 90 MCG
  5. ALPRAZOLAM [Concomitant]
     Active Substance: ALPRAZOLAM
     Route: 048
  6. AMLODIPINE [Concomitant]
     Active Substance: AMLODIPINE BESYLATE
     Route: 048
  7. DEXAMETHASONE [Concomitant]
     Active Substance: DEXAMETHASONE
     Route: 048
  8. ERGOCALCIFEROL [Concomitant]
     Active Substance: ERGOCALCIFEROL
     Route: 048
  9. GABAPENTIN [Concomitant]
     Active Substance: GABAPENTIN
     Route: 048
  10. KETOCONAZOLE [Concomitant]
     Active Substance: KETOCONAZOLE
  11. LEVOTHYROXINE [Concomitant]
     Active Substance: LEVOTHYROXINE\LEVOTHYROXINE SODIUM
     Dosage: 125 MCG
     Route: 048
  12. METOPROLOL SUCCINATE [Concomitant]
     Active Substance: METOPROLOL SUCCINATE
     Route: 048
  13. MONTELUKAST [Concomitant]
     Active Substance: MONTELUKAST SODIUM
     Route: 048
  14. MINERALS\VITAMINS [Concomitant]
     Active Substance: MINERALS\VITAMINS
     Route: 048
  15. ONDANSETRON [Concomitant]
     Active Substance: ONDANSETRON
  16. PROCHLORPERAZINE [Concomitant]
     Active Substance: PROCHLORPERAZINE
     Route: 048
  17. TRAMADOL HYDROCHLORIDE [Concomitant]
     Active Substance: TRAMADOL HYDROCHLORIDE
     Route: 048
  18. VALSARTAN [Concomitant]
     Active Substance: VALSARTAN
     Route: 048

REACTIONS (1)
  - Death [Fatal]
